FAERS Safety Report 7808363-1 (Version None)
Quarter: 2011Q4

REPORT INFORMATION
  Report Type: 
  Country: None (occurrence: None)
  Receive Date: 20111007
  Receipt Date: 20110928
  Transmission Date: 20120403
  Serious: Yes (Hospitalization)
  Sender: FDA-Public Use
  Company Number: 1062211

PATIENT
  Age: 48 Year
  Sex: Male

DRUGS (3)
  1. VANCOMYCIN HYCHLORIDE [Suspect]
     Indication: WOUND INFECTION STAPHYLOCOCCAL
  2. TEICOPLANIN [Suspect]
     Indication: WOUND INFECTION STAPHYLOCOCCAL
     Dosage: INTRAVENOUS
     Route: 042
  3. CEFTAZIDIME [Concomitant]

REACTIONS (1)
  - DRUG RASH WITH EOSINOPHILIA AND SYSTEMIC SYMPTOMS [None]
